FAERS Safety Report 6593604-1 (Version None)
Quarter: 2010Q1

REPORT INFORMATION
  Report Type: 
  Country: None (occurrence: None)
  Receive Date: 20100222
  Receipt Date: 20090824
  Transmission Date: 20100710
  Serious: No
  Sender: FDA-Public Use
  Company Number: US-BRISTOL-MYERS SQUIBB COMPANY-14752646

PATIENT
  Age: 59 Year
  Sex: Female
  Weight: 77 kg

DRUGS (20)
  1. ORENCIA [Suspect]
     Indication: RHEUMATOID ARTHRITIS
     Dosage: INFUSION ON 08/13/2009 STARTED 16 TO 17 MONTHS AGO STOPPED FOR 6 WEEKS AND THEN RESUMED
     Route: 042
  2. MAGNESIUM [Concomitant]
  3. CALCIUM [Concomitant]
  4. CENTRUM SILVER [Concomitant]
  5. HYDROXYTRYPTOPHAN [Concomitant]
  6. WARFARIN SODIUM [Concomitant]
  7. MELOXICAM [Concomitant]
  8. FOLIC ACID [Concomitant]
  9. LIBRAX [Concomitant]
  10. SKELAXIN [Concomitant]
  11. DETROL LA [Concomitant]
  12. PRAVACHOL [Concomitant]
  13. MAXIDEX [Concomitant]
  14. LASIX [Concomitant]
  15. LEXAPRO [Concomitant]
  16. POTASSIUM [Concomitant]
  17. METHOTREXATE [Concomitant]
  18. ZOLPIDEM [Concomitant]
  19. LORTAB [Concomitant]
     Indication: PAIN
     Dosage: 1 DF = 10/350MG NOW TAKING IT 3 TO 4 TIMES DAILY
  20. IMITREX [Concomitant]
     Indication: MIGRAINE

REACTIONS (2)
  - DRUG INEFFECTIVE [None]
  - RHEUMATOID ARTHRITIS [None]
